FAERS Safety Report 5335810-X (Version None)
Quarter: 2007Q2

REPORT INFORMATION
  Report Type: 
  Country: None (occurrence: None)
  Receive Date: 20070322
  Receipt Date: 20070108
  Transmission Date: 20071010
  Serious: No
  Sender: FDA-Public Use
  Company Number: US-CVT-070017

PATIENT
  Age: 60 Year
  Sex: Male
  Weight: 77.1 kg

DRUGS (4)
  1. RANEXA [Suspect]
     Indication: ANGINA PECTORIS
     Dosage: 500 MG, BID, ORAL
     Route: 048
     Dates: start: 20061208, end: 20061215
  2. RANEXA [Suspect]
     Indication: ANGINA PECTORIS
     Dosage: 500 MG, BID, ORAL
     Route: 048
     Dates: start: 20070105
  3. CYMBALTA [Concomitant]
  4. COREG [Concomitant]

REACTIONS (4)
  - ANGER [None]
  - ANXIETY [None]
  - INSOMNIA RELATED TO ANOTHER MENTAL CONDITION [None]
  - NERVOUSNESS [None]
